FAERS Safety Report 9750005 (Version 2)
Quarter: 2014Q1

REPORT INFORMATION
  Report Type: Spontaneous
  Country: US (occurrence: US)
  Receive Date: 20131212
  Receipt Date: 20140115
  Transmission Date: 20141002
  Serious: No
  Sender: FDA-Public Use
  Company Number: US-009507513-1312USA005713

PATIENT
  Age: 86 Year
  Sex: Female
  Weight: 46.26 kg

DRUGS (6)
  1. OXYTROL FOR WOMEN [Suspect]
     Indication: MICTURITION URGENCY
     Dosage: 1 DF, ONCE
     Route: 062
     Dates: start: 20131114, end: 20131114
  2. OXYTROL FOR WOMEN [Suspect]
     Indication: POLLAKIURIA
  3. LEVOTHYROXINE SODIUM [Concomitant]
     Indication: THYROID DISORDER
     Dosage: UNK, UNKNOWN
  4. EVISTA [Concomitant]
     Indication: OSTEOPOROSIS
     Dosage: UNK, UNKNOWN
  5. GABAPENTIN [Concomitant]
     Indication: CONVULSION
     Dosage: UNK, UNKNOWN
  6. ICAPS [Concomitant]
     Indication: MACULAR DEGENERATION
     Dosage: UNK, UNKNOWN

REACTIONS (5)
  - Application site irritation [Unknown]
  - Application site discomfort [Unknown]
  - Dysgeusia [Unknown]
  - Product odour abnormal [Unknown]
  - Product quality issue [Unknown]
